FAERS Safety Report 6224128-9 (Version None)
Quarter: 2009Q2

REPORT INFORMATION
  Report Type: 
  Country: None (occurrence: None)
  Receive Date: 20090612
  Receipt Date: 20090310
  Transmission Date: 20091009
  Serious: No
  Sender: FDA-Public Use
  Company Number: US-ABBOTT-09P-163-0561666-00

PATIENT
  Sex: Female
  Weight: 113.5 kg

DRUGS (4)
  1. HUMIRA [Suspect]
     Indication: PSORIASIS
     Route: 058
     Dates: start: 20090218, end: 20090218
  2. HUMIRA [Suspect]
     Route: 058
     Dates: start: 20090226
  3. TRI-SPRINTEC [Concomitant]
     Indication: CONTRACEPTION
  4. CITALOPRAM [Concomitant]
     Indication: DEPRESSION

REACTIONS (1)
  - INCORRECT DOSE ADMINISTERED [None]
